FAERS Safety Report 23712108 (Version 2)
Quarter: 2024Q2

REPORT INFORMATION
  Report Type: Spontaneous
  Country: US (occurrence: US)
  Receive Date: 20240405
  Receipt Date: 20240622
  Transmission Date: 20240715
  Serious: No
  Sender: FDA-Public Use
  Company Number: US-ABBVIE-5705880

PATIENT
  Age: 39 Year
  Sex: Female

DRUGS (2)
  1. BOTOX COSMETIC [Suspect]
     Active Substance: ONABOTULINUMTOXINA
     Indication: Skin wrinkling
     Dosage: TIME INTERVAL: AS NECESSARY: UNKNOWN
     Route: 030
     Dates: start: 2022, end: 2022
  2. BOTOX COSMETIC [Suspect]
     Active Substance: ONABOTULINUMTOXINA
     Indication: Skin wrinkling
     Dosage: TIME INTERVAL: AS NECESSARY: UNKNOWN
     Route: 030
     Dates: start: 20240119, end: 20240119

REACTIONS (7)
  - Injection site rash [Not Recovered/Not Resolved]
  - Injection site erythema [Not Recovered/Not Resolved]
  - Eye disorder [Not Recovered/Not Resolved]
  - Brow ptosis [Not Recovered/Not Resolved]
  - Pruritus [Not Recovered/Not Resolved]
  - Unevaluable event [Not Recovered/Not Resolved]
  - Eyelid disorder [Not Recovered/Not Resolved]

NARRATIVE: CASE EVENT DATE: 20240201
